FAERS Safety Report 5983882-1 (Version None)
Quarter: 2008Q4

REPORT INFORMATION
  Report Type: 
  Country: None (occurrence: None)
  Receive Date: 20081208
  Receipt Date: 20081202
  Transmission Date: 20090506
  Serious: No
  Sender: FDA-Public Use
  Company Number: US-JNJFOC-20081201308

PATIENT
  Sex: Female
  Weight: 62.6 kg

DRUGS (3)
  1. DURAGESIC-100 [Suspect]
     Indication: BACK INJURY
     Route: 062
  2. DURAGESIC-100 [Suspect]
     Indication: FIBROMYALGIA
     Route: 062
  3. NORCO [Concomitant]
     Indication: BREAKTHROUGH PAIN
     Route: 048

REACTIONS (2)
  - DRUG ADMINISTERED AT INAPPROPRIATE SITE [None]
  - WRONG TECHNIQUE IN DRUG USAGE PROCESS [None]
